FAERS Safety Report 14036027 (Version 6)
Quarter: 2017Q4

REPORT INFORMATION
  Report Type: Report from Study
  Country: US (occurrence: US)
  Receive Date: 20171003
  Receipt Date: 20171212
  Transmission Date: 20180321
  Serious: Yes (Hospitalization, Other)
  Sender: FDA-Public Use
  Company Number: US-JAZZ-2017-US-009222

PATIENT
  Age: 42 Year
  Sex: Female

DRUGS (5)
  1. XYREM [Suspect]
     Active Substance: SODIUM OXYBATE
     Indication: NARCOLEPSY
     Dosage: 2.25 G, BID
     Route: 048
     Dates: start: 20170711, end: 2017
  2. XYREM [Suspect]
     Active Substance: SODIUM OXYBATE
     Dosage: 4.5 G, BID
     Route: 048
     Dates: start: 201708
  3. DEMEROL [Suspect]
     Active Substance: MEPERIDINE HYDROCHLORIDE
     Indication: PAIN
  4. XYREM [Suspect]
     Active Substance: SODIUM OXYBATE
     Dosage: HIGHER DOSE
     Route: 048
     Dates: start: 2017, end: 2017
  5. XYREM [Suspect]
     Active Substance: SODIUM OXYBATE
     Dosage: DOSE ADJUSTMENT
     Route: 048
     Dates: start: 2017, end: 201708

REACTIONS (18)
  - Snoring [Not Recovered/Not Resolved]
  - Hypersensitivity [Not Recovered/Not Resolved]
  - Cholecystectomy [Unknown]
  - Swollen tongue [Unknown]
  - Fatigue [Unknown]
  - Condition aggravated [Not Recovered/Not Resolved]
  - Blood pressure increased [Recovering/Resolving]
  - Hyperhidrosis [Recovered/Resolved]
  - Nasal turbinate hypertrophy [Unknown]
  - Upper-airway cough syndrome [Not Recovered/Not Resolved]
  - Feeling drunk [Recovered/Resolved]
  - Dry mouth [Not Recovered/Not Resolved]
  - Nasal septum deviation [Unknown]
  - Respiratory tract congestion [Unknown]
  - Skin irritation [Unknown]
  - Blood potassium decreased [Unknown]
  - Unevaluable event [Unknown]
  - Retching [Not Recovered/Not Resolved]

NARRATIVE: CASE EVENT DATE: 2017
